FAERS Safety Report 21375165 (Version 10)
Quarter: 2023Q2

REPORT INFORMATION
  Report Type: Report from Study
  Country: KR (occurrence: None)
  Receive Date: 20220926
  Receipt Date: 20230410
  Transmission Date: 20230722
  Serious: Yes (Hospitalization)
  Sender: FDA-Public Use
  Company Number: KR-Eisai Medical Research-EC-2022-124388

PATIENT
  Age: 81 Year
  Sex: Male
  Weight: 57.4 kg

DRUGS (17)
  1. LENVATINIB [Suspect]
     Active Substance: LENVATINIB
     Indication: Clear cell renal cell carcinoma
     Route: 048
     Dates: start: 20220610, end: 20220627
  2. LENVATINIB [Suspect]
     Active Substance: LENVATINIB
     Dosage: STARTING DOSE AT: 14 MG, FLUCTUATED DOSAGE
     Route: 048
     Dates: start: 20220705, end: 20220913
  3. QUAVONLIMAB [Suspect]
     Active Substance: QUAVONLIMAB
     Indication: Clear cell renal cell carcinoma
     Dosage: MK-1308A 425 MG (QUAVONLIMAB [MK-1308] 25 MG (+) PEMBROLIZUMAB [MK-3475] 400 MG)
     Route: 042
     Dates: start: 20220610, end: 20220610
  4. DILTIAZEM HYDROCHLORIDE [Concomitant]
     Active Substance: DILTIAZEM HYDROCHLORIDE
     Dates: start: 200605, end: 20220913
  5. ASPIRIN [Concomitant]
     Active Substance: ASPIRIN
     Dates: start: 200605
  6. NITROGLYCERIN [Concomitant]
     Active Substance: NITROGLYCERIN
     Dates: start: 200605
  7. LIPITOR [Concomitant]
     Active Substance: ATORVASTATIN CALCIUM
     Dates: start: 200605
  8. MOLSITON [Concomitant]
     Dates: start: 200701
  9. LACTULOSE [Concomitant]
     Active Substance: LACTULOSE
     Dates: start: 20210701, end: 20220704
  10. MAGNESIUM OXIDE [Concomitant]
     Active Substance: MAGNESIUM OXIDE
     Dates: start: 202205, end: 20220728
  11. SILODOSIN [Concomitant]
     Active Substance: SILODOSIN
     Dates: start: 20220610, end: 20220711
  12. TRAMADOL HYDROCHLORIDE [Concomitant]
     Active Substance: TRAMADOL HYDROCHLORIDE
     Dates: start: 20220617, end: 20220623
  13. FOTAGEL [Concomitant]
     Dates: start: 20220621, end: 20220625
  14. GASTER [Concomitant]
     Active Substance: FAMOTIDINE
     Dates: start: 20220621, end: 20220627
  15. DULCOLAX (BISACODYL) [Concomitant]
     Active Substance: BISACODYL
     Dates: start: 20220701, end: 20220701
  16. DULACKHAN [Concomitant]
     Dates: start: 20210701, end: 20220704
  17. PEMBROLIZUMAB [Suspect]
     Active Substance: PEMBROLIZUMAB

REACTIONS (1)
  - Rash [Recovered/Resolved]

NARRATIVE: CASE EVENT DATE: 20220701
